FAERS Safety Report 24416355 (Version 4)
Quarter: 2025Q2

REPORT INFORMATION
  Report Type: Spontaneous
  Country: US (occurrence: US)
  Receive Date: 20241009
  Receipt Date: 20250502
  Transmission Date: 20250717
  Serious: Yes (Other)
  Sender: PFIZER
  Company Number: US-PFIZER INC-202400270032

PATIENT
  Age: 40 Year
  Sex: Male
  Weight: 104.33 kg

DRUGS (25)
  1. NURTEC ODT [Interacting]
     Active Substance: RIMEGEPANT SULFATE
     Indication: Migraine
  2. NURTEC ODT [Interacting]
     Active Substance: RIMEGEPANT SULFATE
     Dates: start: 20220317
  3. BUPIVACAINE HYDROCHLORIDE [Interacting]
     Active Substance: BUPIVACAINE HYDROCHLORIDE
     Indication: Pain management
     Dates: start: 20200227
  4. DEPO-MEDROL [Interacting]
     Active Substance: METHYLPREDNISOLONE ACETATE
     Indication: Pain management
     Dates: start: 20200227
  5. LIDOCAINE HYDROCHLORIDE [Interacting]
     Active Substance: LIDOCAINE HYDROCHLORIDE
     Indication: Pain management
     Dates: start: 20200227
  6. GABAPENTIN [Interacting]
     Active Substance: GABAPENTIN
  7. TRAZODONE [Interacting]
     Active Substance: TRAZODONE HYDROCHLORIDE
  8. AMLODIPINE BESYLATE\BENAZEPRIL HYDROCHLORIDE [Concomitant]
     Active Substance: AMLODIPINE BESYLATE\BENAZEPRIL HYDROCHLORIDE
     Dosage: TAKE 1 CAPSULE BY MOUTH DAILY
     Route: 048
     Dates: start: 20220317
  9. BACLOFEN [Concomitant]
     Active Substance: BACLOFEN
     Dosage: 1 TABLET DAILY
     Route: 048
     Dates: start: 20220317
  10. BACLOFEN [Concomitant]
     Active Substance: BACLOFEN
     Dosage: 1 TABLET DAILY
     Dates: start: 20220317
  11. FISH OIL [Concomitant]
     Active Substance: FISH OIL
     Dosage: SOFTGEL 250-500-1000, SIG: TWICE DAILY
  12. LEVOMEFOLATE CALCIUM [Concomitant]
     Active Substance: LEVOMEFOLATE CALCIUM
     Dosage: 680 UG, DAILY
  13. OLMESARTAN [Concomitant]
     Active Substance: OLMESARTAN
     Dosage: TAKE 1 TABLET (20 MG) BY ORAL ROUTE DAILY
     Route: 048
  14. HYDROCHLOROTHIAZIDE [Concomitant]
     Active Substance: HYDROCHLOROTHIAZIDE
  15. HYDROCHLOROTHIAZIDE [Concomitant]
     Active Substance: HYDROCHLOROTHIAZIDE
     Dosage: 1 TABLET (25 MG), DAILY, ORAL, STAT
     Route: 048
  16. ASPIRIN [Concomitant]
     Active Substance: ASPIRIN
     Dosage: RELEASE 1 TABLET DAILY
     Dates: start: 20220317
  17. ATORVASTATIN [Concomitant]
     Active Substance: ATORVASTATIN
     Dosage: 1 TABLET DAILY
     Dates: start: 20220223
  18. ESCITALOPRAM [Concomitant]
     Active Substance: ESCITALOPRAM OXALATE
     Dosage: 1 TABLET DAILY
     Dates: start: 20220317
  19. MAGNESIUM [Concomitant]
     Active Substance: MAGNESIUM
     Dosage: 1 TABLET DAILY
     Dates: start: 20220317
  20. VITAMIN D3 [Concomitant]
     Active Substance: CHOLECALCIFEROL
     Dosage: VITAMIN D3 50MCG (2000 UNIT) TABLET 1 TABLET DAILY
     Dates: start: 20220318
  21. LABETALOL [Concomitant]
     Active Substance: LABETALOL
     Route: 042
  22. METOPROLOL TARTRATE [Concomitant]
     Active Substance: METOPROLOL TARTRATE
     Route: 048
  23. HYDRALAZINE [Concomitant]
     Active Substance: HYDRALAZINE HYDROCHLORIDE
     Route: 048
  24. PEPCID [Concomitant]
     Active Substance: FAMOTIDINE
     Route: 042
  25. XANAX [Concomitant]
     Active Substance: ALPRAZOLAM
     Route: 048

REACTIONS (12)
  - Drug interaction [Unknown]
  - Blood thyroid stimulating hormone decreased [Unknown]
  - Cerebrovascular accident [Unknown]
  - Anaphylactic shock [Unknown]
  - Infection [Unknown]
  - Dyspnoea [Unknown]
  - Cognitive disorder [Unknown]
  - Nervous system disorder [Unknown]
  - Blood disorder [Unknown]
  - Sleep apnoea syndrome [Unknown]
  - Hypersensitivity [Unknown]
  - Gastrointestinal disorder [Unknown]

NARRATIVE: CASE EVENT DATE: 20200301
